FAERS Safety Report 5674357-8 (Version None)
Quarter: 2008Q1

REPORT INFORMATION
  Report Type: 
  Country: None (occurrence: None)
  Receive Date: 20080320
  Receipt Date: 20080310
  Transmission Date: 20080703
  Serious: Yes (Death, Other)
  Sender: FDA-Public Use
  Company Number: JP-JNJFOC-20080201797

PATIENT
  Sex: Male
  Weight: 50 kg

DRUGS (17)
  1. REMICADE [Suspect]
     Route: 042
  2. REMICADE [Suspect]
     Dosage: 3 INFUSIONS ON UNKNOWN DATES
     Route: 042
  3. REMICADE [Suspect]
     Indication: RHEUMATOID ARTHRITIS
     Route: 042
  4. RHEUMATREX [Suspect]
     Indication: RHEUMATOID ARTHRITIS
     Route: 048
  5. PREDNISONE [Suspect]
     Indication: RHEUMATOID ARTHRITIS
     Route: 048
  6. PROGRAF [Suspect]
     Indication: RHEUMATOID ARTHRITIS
     Route: 048
  7. ALFAROL [Concomitant]
     Indication: OSTEOPOROSIS PROPHYLAXIS
     Dosage: 1RG
     Route: 048
  8. ITRIZOLE [Concomitant]
     Indication: FUNGAL INFECTION
     Route: 048
  9. AZULFIDINE EN-TABS [Concomitant]
     Indication: RHEUMATOID ARTHRITIS
     Route: 048
  10. HYPEN [Concomitant]
     Indication: ARTHRALGIA
     Route: 048
  11. MUCOSTA [Concomitant]
     Indication: GASTRITIS PROPHYLAXIS
     Route: 048
  12. MEVALOTIN [Concomitant]
     Indication: HYPERLIPIDAEMIA
     Route: 048
  13. DEPAS [Concomitant]
     Indication: ANXIETY
     Route: 048
  14. TAKEPRON [Concomitant]
     Indication: GASTRITIS PROPHYLAXIS
     Route: 048
  15. CLARITHROMYCIN [Concomitant]
     Indication: EMPYEMA
     Route: 048
  16. VOLTAREN [Concomitant]
     Indication: ARTHRALGIA
  17. SUMILU STICK [Concomitant]
     Indication: ARTHRALGIA

REACTIONS (2)
  - BRAIN ABSCESS [None]
  - CARDIAC ARREST [None]
